FAERS Safety Report 4493955-0 (Version None)
Quarter: 2004Q4

REPORT INFORMATION
  Report Type: 
  Country: None (occurrence: None)
  Receive Date: 20041104
  Receipt Date: 20041104
  Transmission Date: 20050328
  Serious: Yes (Death)
  Sender: FDA-Public Use
  Company Number: None

PATIENT
  Age: 74 Year
  Sex: Female
  Weight: 66 kg

DRUGS (1)
  1. TAMOXIFEN   20MG [Suspect]
     Indication: BREAST CANCER
     Dosage: 20MG   QDAY  P.O.
     Route: 048
     Dates: start: 20011211, end: 20020610

REACTIONS (1)
  - METASTATIC NEOPLASM [None]
